FAERS Safety Report 4835774-9 (Version None)
Quarter: 2005Q4

REPORT INFORMATION
  Report Type: 
  Country: None (occurrence: None)
  Receive Date: 20051123
  Receipt Date: 20051117
  Transmission Date: 20060501
  Serious: Yes (Hospitalization, Other)
  Sender: FDA-Public Use
  Company Number: US-GLAXOSMITHKLINE-A0582763A

PATIENT
  Age: 73 Year
  Sex: Female

DRUGS (11)
  1. VALTREX [Suspect]
     Dosage: 1G PER DAY
     Route: 048
     Dates: start: 20051108, end: 20051108
  2. EPOGEN [Concomitant]
  3. PLAVIX [Concomitant]
  4. LORATADINE [Concomitant]
  5. DOCUSATE [Concomitant]
  6. FIBERCON [Concomitant]
  7. ZETIA [Concomitant]
  8. ASPIRIN [Concomitant]
  9. IRON SUPPLEMENT [Concomitant]
  10. RENAGEL [Concomitant]
  11. INSULIN [Concomitant]

REACTIONS (6)
  - ASTHENIA [None]
  - BLINDNESS [None]
  - COMA [None]
  - DYSKINESIA [None]
  - HALLUCINATION [None]
  - OESOPHAGEAL HAEMORRHAGE [None]
